FAERS Safety Report 25815445 (Version 2)
Quarter: 2025Q3

REPORT INFORMATION
  Report Type: Spontaneous
  Country: JP (occurrence: JP)
  Receive Date: 20250918
  Receipt Date: 20250930
  Transmission Date: 20251020
  Serious: Yes (Hospitalization)
  Sender: ROCHE
  Company Number: JP-CHUGAI-2025029437

PATIENT
  Age: 23 Year
  Sex: Male
  Weight: 66.5 kg

DRUGS (1)
  1. HEMLIBRA [Suspect]
     Active Substance: EMICIZUMAB-KXWH
     Indication: Haemophilia A without inhibitors
     Dosage: 210 MILLIGRAM, ONCE/2WEEKS
     Route: 058
     Dates: start: 20210304, end: 202509

REACTIONS (1)
  - Intra-abdominal haemorrhage [Not Recovered/Not Resolved]

NARRATIVE: CASE EVENT DATE: 20250909
